FAERS Safety Report 7921171-6 (Version None)
Quarter: 2011Q4

REPORT INFORMATION
  Report Type: 
  Country: None (occurrence: None)
  Receive Date: 20111117
  Receipt Date: 20111103
  Transmission Date: 20120403
  Serious: Yes (Hospitalization)
  Sender: FDA-Public Use
  Company Number: AR-TEVA-307933ISR

PATIENT
  Sex: Female

DRUGS (11)
  1. FOLIC ACID [Concomitant]
     Dates: start: 20070511
  2. FUROSEMIDE [Concomitant]
     Dates: start: 20100520, end: 20101021
  3. MEPREDNISON [Concomitant]
     Dates: start: 20100420
  4. DICLOFENAC SODIUM [Concomitant]
     Dates: start: 20070508, end: 20101021
  5. ADALIMUMAB [Suspect]
     Indication: RHEUMATOID ARTHRITIS
     Dosage: 40 MILLIGRAM;
     Route: 058
     Dates: start: 20100817, end: 20101012
  6. ENALAPRIL MALEATE [Concomitant]
     Dates: start: 20070101, end: 20101021
  7. CLONAZEPAM [Concomitant]
     Dates: start: 20100623
  8. BISOPROLOL FUMARATE [Concomitant]
     Dates: start: 20100520, end: 20101021
  9. OMEPRAZOLE [Concomitant]
     Dates: start: 20100323, end: 20101021
  10. METHOTREXATE [Suspect]
     Indication: RHEUMATOID ARTHRITIS
     Dates: start: 20100303
  11. ABATACEPT [Suspect]
     Indication: RHEUMATOID ARTHRITIS
     Dosage: 125 MILLIGRAM;
     Route: 058
     Dates: start: 20100817, end: 20101012

REACTIONS (1)
  - GASTROENTERITIS [None]
